FAERS Safety Report 7960952-X (Version None)
Quarter: 2011Q4

REPORT INFORMATION
  Report Type: 
  Country: None (occurrence: None)
  Receive Date: 20111202
  Receipt Date: 20111125
  Transmission Date: 20120403
  Serious: Yes (Hospitalization)
  Sender: FDA-Public Use
  Company Number: 2011002084

PATIENT
  Age: 59 Year
  Sex: Female
  Weight: 54 kg

DRUGS (21)
  1. AMILORID/HCTZ (AMILORIDE HYDROCHLORIDE, HYDROCHLOROTHIAZIDE) [Concomitant]
  2. SPIRACTIN (SPIRONOLACTONE) [Concomitant]
  3. ANALGESICS (ANALGESICS) [Concomitant]
  4. ASTHAVENT (SALBUTAMOL) [Concomitant]
  5. ERLOTINIB HYDROCHLORIDE [Suspect]
     Indication: HEPATIC NEOPLASM MALIGNANT
     Dosage: SEE IMAGE
     Route: 048
     Dates: start: 20101222, end: 20110406
  6. ERLOTINIB HYDROCHLORIDE [Suspect]
     Indication: HEPATIC NEOPLASM MALIGNANT
     Dosage: SEE IMAGE
     Route: 048
     Dates: start: 20110824, end: 20110913
  7. ERLOTINIB HYDROCHLORIDE [Suspect]
     Indication: HEPATIC NEOPLASM MALIGNANT
     Dosage: SEE IMAGE
     Route: 048
     Dates: start: 20111004
  8. ERLOTINIB HYDROCHLORIDE [Suspect]
     Indication: HEPATIC NEOPLASM MALIGNANT
     Dosage: SEE IMAGE
     Route: 048
     Dates: start: 20111025
  9. ERLOTINIB HYDROCHLORIDE [Suspect]
     Indication: HEPATIC NEOPLASM MALIGNANT
     Dosage: SEE IMAGE
     Route: 048
     Dates: start: 20110413, end: 20110429
  10. ERLOTINIB HYDROCHLORIDE [Suspect]
     Indication: HEPATIC NEOPLASM MALIGNANT
     Dosage: SEE IMAGE
     Route: 048
     Dates: start: 20110501, end: 20110505
  11. ERLOTINIB HYDROCHLORIDE [Suspect]
     Indication: HEPATIC NEOPLASM MALIGNANT
     Dosage: SEE IMAGE
     Route: 048
     Dates: start: 20110506, end: 20110726
  12. HYDROCHLOROTHIAIZIDE (HYDROCHLOROTHIAZIDE) [Concomitant]
  13. ADALAT CC [Concomitant]
  14. SORAFENIB (SORAFENIB) TABLET [Suspect]
     Indication: HEPATIC NEOPLASM MALIGNANT
     Dosage: SEE IAMGE
     Route: 048
     Dates: start: 20110316, end: 20110406
  15. SORAFENIB (SORAFENIB) TABLET [Suspect]
     Indication: HEPATIC NEOPLASM MALIGNANT
     Dosage: SEE IAMGE
     Route: 048
     Dates: start: 20111025
  16. SORAFENIB (SORAFENIB) TABLET [Suspect]
     Indication: HEPATIC NEOPLASM MALIGNANT
     Dosage: SEE IAMGE
     Route: 048
     Dates: start: 20110413, end: 20110429
  17. SORAFENIB (SORAFENIB) TABLET [Suspect]
     Indication: HEPATIC NEOPLASM MALIGNANT
     Dosage: SEE IAMGE
     Route: 048
     Dates: start: 20101222, end: 20110315
  18. SORAFENIB (SORAFENIB) TABLET [Suspect]
     Indication: HEPATIC NEOPLASM MALIGNANT
     Dosage: SEE IAMGE
     Route: 048
     Dates: start: 20110501, end: 20110726
  19. SORAFENIB (SORAFENIB) TABLET [Suspect]
     Indication: HEPATIC NEOPLASM MALIGNANT
     Dosage: SEE IAMGE
     Route: 048
     Dates: start: 20110824, end: 20110913
  20. SORAFENIB (SORAFENIB) TABLET [Suspect]
     Indication: HEPATIC NEOPLASM MALIGNANT
     Dosage: SEE IAMGE
     Route: 048
     Dates: start: 20111004
  21. PHARMAPRESS (ENALAPRIL MALEATE) [Concomitant]

REACTIONS (6)
  - PALMAR-PLANTAR ERYTHRODYSAESTHESIA SYNDROME [None]
  - ASTHENIA [None]
  - OFF LABEL USE [None]
  - LOWER RESPIRATORY TRACT INFECTION [None]
  - TOXICITY TO VARIOUS AGENTS [None]
  - CARDIAC FAILURE CONGESTIVE [None]
